FAERS Safety Report 23153023 (Version 1)
Quarter: 2023Q4

REPORT INFORMATION
  Report Type: Spontaneous
  Country: None (occurrence: CN)
  Receive Date: 20231107
  Receipt Date: 20231107
  Transmission Date: 20240110
  Serious: Yes (Life-Threatening, Other)
  Sender: FDA-Public Use
  Company Number: CN-Jiangsu Hansoh Pharmaceutical Co., Ltd-2147902

PATIENT
  Sex: Female
  Weight: 62 kg

DRUGS (4)
  1. AZACITIDINE [Suspect]
     Active Substance: AZACITIDINE
     Indication: Acute myeloid leukaemia
     Route: 058
     Dates: start: 20230928, end: 20231004
  2. IDARUBICIN HYDROCHLORIDE [Suspect]
     Active Substance: IDARUBICIN HYDROCHLORIDE
     Route: 040
     Dates: start: 20230928, end: 20230929
  3. CYTARABINE [Suspect]
     Active Substance: CYTARABINE
     Route: 037
     Dates: start: 20230927, end: 20230927
  4. METHOTREXATE [Suspect]
     Active Substance: METHOTREXATE
     Route: 037
     Dates: start: 20230927, end: 20230927

REACTIONS (1)
  - Myelosuppression [Recovering/Resolving]

NARRATIVE: CASE EVENT DATE: 20231013
